FAERS Safety Report 6114505-9 (Version None)
Quarter: 2009Q1

REPORT INFORMATION
  Report Type: 
  Country: None (occurrence: None)
  Receive Date: 20090313
  Receipt Date: 20090311
  Transmission Date: 20090719
  Serious: Yes (Other)
  Sender: FDA-Public Use
  Company Number: US-BRISTOL-MYERS SQUIBB COMPANY-14539423

PATIENT

DRUGS (2)
  1. COUMADIN [Suspect]
  2. PLAVIX [Suspect]
     Dosage: DOSE INCREASED TO 150MG QD SINCE JAN2009.

REACTIONS (1)
  - MYOCARDIAL INFARCTION [None]
